FAERS Safety Report 9031776 (Version 1)
Quarter: 2013Q1

REPORT INFORMATION
  Report Type: Spontaneous
  Country: ES (occurrence: ES)
  Receive Date: 20130124
  Receipt Date: 20130124
  Transmission Date: 20140127
  Serious: Yes (Hospitalization)
  Sender: FDA-Public Use
  Company Number: ES-ELI_LILLY_AND_COMPANY-ES201301003936

PATIENT
  Age: 82 Year
  Sex: Female
  Weight: 70 kg

DRUGS (6)
  1. FORSTEO [Suspect]
     Indication: OSTEOPOROSIS
     Dosage: 20 UG, QD
     Route: 058
     Dates: start: 20110303, end: 20121216
  2. ENALAPRIL [Concomitant]
     Indication: HYPERTENSION
     Dosage: 20 MG, QD
     Route: 048
  3. CALCIUM SANDOZ [Concomitant]
     Indication: OSTEOPOROSIS
     Dosage: 20 MG, QD
     Route: 048
  4. ATORVASTATIN [Concomitant]
     Indication: HYPERCHOLESTEROLAEMIA
     Dosage: 20 MG, QD
     Route: 048
  5. ADIRO [Concomitant]
     Dosage: UNK, QD
     Route: 048
  6. OMEPRAZOLE [Concomitant]
     Indication: PANCREATITIS
     Dosage: 40 MG, QD
     Route: 048
     Dates: start: 20121216

REACTIONS (1)
  - Pancreatitis acute [Recovering/Resolving]
